FAERS Safety Report 14203558 (Version 1)
Quarter: 2017Q4

REPORT INFORMATION
  Report Type: Spontaneous
  Country: US (occurrence: US)
  Receive Date: 20171120
  Receipt Date: 20171120
  Transmission Date: 20180321
  Serious: No
  Sender: FDA-Public Use
  Company Number: US-SHIRE-US201719219

PATIENT
  Sex: Female
  Weight: 56.69 kg

DRUGS (1)
  1. XIIDRA [Suspect]
     Active Substance: LIFITEGRAST
     Indication: DRY EYE
     Dosage: 1 GTT, 2X/DAY:BID
     Route: 047
     Dates: start: 20170808

REACTIONS (5)
  - Instillation site reaction [Unknown]
  - Vision blurred [Unknown]
  - Diplopia [Unknown]
  - Drug ineffective [Unknown]
  - Instillation site pain [Unknown]
